FAERS Safety Report 9936840 (Version 1)
Quarter: 2014Q1

REPORT INFORMATION
  Report Type: Spontaneous
  Country: TR (occurrence: None)
  Receive Date: 20140110
  Receipt Date: 20140110
  Transmission Date: 20141002
  Serious: Yes (Hospitalization)
  Sender: FDA-Public Use
  Company Number: 2013-01629

PATIENT
  Age: 10 Month
  Sex: Female

DRUGS (5)
  1. LEVETIRACETAM (UNKNOWN) (LEVETIRACETAM) [Suspect]
     Indication: PRODUCT USED FOR UNKNOWN INDICATION
  2. VIGABATRIN (UNKNOWN) [Concomitant]
  3. TOPIRAMATE (UNKNOWN) (TOPIRAMATE) [Concomitant]
  4. CALCIUM FOLINATE (UNKNOWN) [Concomitant]
  5. VITAMIN B6 (UNKNOWN) [Concomitant]

REACTIONS (5)
  - Hypotonia [None]
  - Accidental overdose [None]
  - Somnolence [None]
  - Apathy [None]
  - Off label use [None]
